FAERS Safety Report 9350251 (Version 1)
Quarter: 2013Q2

REPORT INFORMATION
  Report Type: Spontaneous
  Country: US (occurrence: US)
  Receive Date: 20130617
  Receipt Date: 20130617
  Transmission Date: 20140414
  Serious: Yes (Death)
  Sender: FDA-Public Use
  Company Number: US-AMGEN-USASP2013042125

PATIENT
  Age: 53 Year
  Sex: Male

DRUGS (6)
  1. NEUPOGEN [Suspect]
     Indication: PRODUCT USED FOR UNKNOWN INDICATION
     Dosage: 300 MUG, AFTER CHEMO
     Route: 058
  2. CYCLOPHOSPHAMIDE [Concomitant]
     Dosage: UNK
  3. DOXORUBICIN [Concomitant]
     Dosage: UNK
  4. VINCRISTINE [Concomitant]
     Dosage: UNK
  5. PREDNISONE [Concomitant]
     Dosage: UNK
  6. RITUXIMAB [Concomitant]
     Dosage: UNK

REACTIONS (1)
  - Death [Fatal]
